FAERS Safety Report 14604690 (Version 3)
Quarter: 2019Q3

REPORT INFORMATION
  Report Type: Report from Study
  Country: JP (occurrence: JP)
  Receive Date: 20180306
  Receipt Date: 20190930
  Transmission Date: 20191004
  Serious: Yes (Hospitalization)
  Sender: FDA-Public Use
  Company Number: JP-ACTELION-A-CH2016-140239

PATIENT
  Sex: Female

DRUGS (25)
  1. ISCOTIN [Suspect]
     Active Substance: ISONIAZID
     Dosage: 200 G, UNK
     Route: 048
     Dates: start: 20150213, end: 20160130
  2. ADCIRCA [Concomitant]
     Active Substance: TADALAFIL
  3. MIYA-BM [Concomitant]
     Active Substance: CLOSTRIDIUM BUTYRICUM SPORES STRAIN M-55
  4. LASIX [Concomitant]
     Active Substance: FUROSEMIDE
  5. ADALAT [Concomitant]
     Active Substance: NIFEDIPINE
  6. PYRIDOXAL PHOSPHATE [Suspect]
     Active Substance: PYRIDOXAL PHOSPHATE
     Indication: TUBERCULOSIS
     Dosage: 1 TBS, UNK
     Route: 048
     Dates: start: 20150213, end: 20160130
  7. VOLIBRIS [Concomitant]
     Active Substance: AMBRISENTAN
  8. SLOW-K [Concomitant]
     Active Substance: POTASSIUM CHLORIDE
  9. PREDNISOLONE. [Concomitant]
     Active Substance: PREDNISOLONE
  10. SPIRONOLACTONE. [Concomitant]
     Active Substance: SPIRONOLACTONE
  11. PYRIDOXAL PHOSPHATE [Suspect]
     Active Substance: PYRIDOXAL PHOSPHATE
     Indication: NEUROPATHY PERIPHERAL
     Dosage: 30 MG, UNK
     Route: 048
     Dates: start: 20160609
  12. ALDACTONE A [Concomitant]
     Active Substance: SPIRONOLACTONE
  13. SAMSCA [Concomitant]
     Active Substance: TOLVAPTAN
  14. LENDORMIN [Concomitant]
     Active Substance: BROTIZOLAM
  15. EPOPROSTENOL ACT [Suspect]
     Active Substance: EPOPROSTENOL
     Indication: PULMONARY ARTERIAL HYPERTENSION
     Dosage: UNK
     Route: 042
     Dates: start: 20150115, end: 20171109
  16. ETHAMBUTOL HYDROCHLORIDE. [Suspect]
     Active Substance: ETHAMBUTOL HYDROCHLORIDE
     Indication: TUBERCULOSIS
     Dosage: 750 MG, QD
     Route: 048
     Dates: start: 20150213, end: 20150407
  17. ISCOTIN [Suspect]
     Active Substance: ISONIAZID
     Indication: TUBERCULOSIS
     Dosage: 200 G, UNK
     Route: 048
     Dates: start: 20160609
  18. NEXIUM [Concomitant]
     Active Substance: ESOMEPRAZOLE MAGNESIUM
  19. FOSAMAC [Concomitant]
     Active Substance: ALENDRONATE SODIUM
  20. FUROSEMIDE. [Concomitant]
     Active Substance: FUROSEMIDE
  21. OLOPATADINE HYDROCHLORIDE. [Concomitant]
     Active Substance: OLOPATADINE HYDROCHLORIDE
  22. RIFAMPICIN [Suspect]
     Active Substance: RIFAMPIN
     Indication: TUBERCULOSIS
     Dosage: 450 MG, QD
     Route: 048
     Dates: start: 20150213, end: 20150407
  23. URSO [Concomitant]
     Active Substance: URSODIOL
  24. OXYGEN. [Concomitant]
     Active Substance: OXYGEN
  25. BROTIZOLAM [Concomitant]
     Active Substance: BROTIZOLAM

REACTIONS (5)
  - Pericarditis [Recovered/Resolved]
  - Drug eruption [Recovering/Resolving]
  - Palpitations [Recovering/Resolving]
  - Basedow^s disease [Recovering/Resolving]
  - Rash generalised [Recovered/Resolved]

NARRATIVE: CASE EVENT DATE: 20150329
